FAERS Safety Report 25779546 (Version 2)
Quarter: 2025Q4

REPORT INFORMATION
  Report Type: Spontaneous
  Country: JP (occurrence: JP)
  Receive Date: 20250909
  Receipt Date: 20251219
  Transmission Date: 20260118
  Serious: Yes (Other)
  Sender: MERCK SHARP & DOHME LLC
  Company Number: JP-009507513-2325954

PATIENT
  Age: 63 Year
  Sex: Male
  Weight: 51.9 kg

DRUGS (14)
  1. KEYTRUDA [Suspect]
     Active Substance: PEMBROLIZUMAB
     Indication: Head and neck cancer
     Route: 041
     Dates: start: 20250424, end: 20250627
  2. VORICONAZOLE [Concomitant]
     Active Substance: VORICONAZOLE
     Dosage: STRENGTH:200MG
     Route: 048
  3. PREDNISOLONE [Concomitant]
     Active Substance: PREDNISOLONE
     Dosage: STRENGTH:5MG
     Route: 048
  4. TRAMADOL HYDROCHLORIDE [Concomitant]
     Active Substance: TRAMADOL HYDROCHLORIDE
     Dosage: STRENGTH:25 MG
     Route: 048
  5. Tarigen OD [Concomitant]
     Dosage: STRENGTH:5MG
     Route: 048
  6. Bilanoa OD [Concomitant]
     Dosage: STRENGTH:20MG
     Route: 048
  7. MONTELUKAST OD [Concomitant]
     Dosage: STRENGTH:10MG
     Route: 048
  8. BROTIZOLAM [Concomitant]
     Active Substance: BROTIZOLAM
     Dosage: STRENGTH:0.25MG
     Route: 048
  9. Picosulfate oral solution 0.75% [Concomitant]
     Route: 065
  10. Novolin R Injection FlexPen [Concomitant]
     Route: 065
  11. Nexium Suspension Granules (Sachets) [Concomitant]
     Dosage: STRENGTH: 20MG
     Route: 048
  12. Elental  (powder for oral/enteral reconstitution) [Concomitant]
     Dosage: STRENGTH:80G
     Route: 065
  13. FLUOROURACIL [Concomitant]
     Active Substance: FLUOROURACIL
     Route: 065
  14. CARBOPLATIN [Concomitant]
     Active Substance: CARBOPLATIN
     Route: 065

REACTIONS (1)
  - Hepatic function abnormal [Recovering/Resolving]

NARRATIVE: CASE EVENT DATE: 20250627
